FAERS Safety Report 5841085-5 (Version None)
Quarter: 2008Q3

REPORT INFORMATION
  Report Type: 
  Country: None (occurrence: None)
  Receive Date: 20080812
  Receipt Date: 20080801
  Transmission Date: 20090109
  Serious: Yes (Hospitalization)
  Sender: FDA-Public Use
  Company Number: GB-RANBAXY-2008RR-16918

PATIENT

DRUGS (4)
  1. ACETAMINOPHEN [Suspect]
     Indication: OVERDOSE
     Dosage: 29 G, UNK
  2. CODEINE SUL TAB [Suspect]
     Indication: OVERDOSE
  3. FLUOXETINE [Suspect]
     Indication: OVERDOSE
  4. DIAZEPAM [Suspect]
     Indication: OVERDOSE

REACTIONS (2)
  - HEPATOTOXICITY [None]
  - OVERDOSE [None]
